FAERS Safety Report 14744674 (Version 1)
Quarter: 2018Q2

REPORT INFORMATION
  Report Type: Spontaneous
  Country: US (occurrence: US)
  Receive Date: 20180405
  Receipt Date: 20180405
  Transmission Date: 20180711
  Serious: Yes (Disabling, Other)
  Sender: FDA-Public Use
  Company Number: None

PATIENT
  Age: 58 Year
  Sex: Male
  Weight: 89.81 kg

DRUGS (18)
  1. VITAMIN B6 [Concomitant]
     Active Substance: PYRIDOXINE HYDROCHLORIDE
  2. FOLIC ACID. [Concomitant]
     Active Substance: FOLIC ACID
  3. VITAMIN B12 [Concomitant]
     Active Substance: CYANOCOBALAMIN
  4. ALLOPURINOL. [Concomitant]
     Active Substance: ALLOPURINOL
  5. AMLODIPINE [Concomitant]
     Active Substance: AMLODIPINE BESYLATE
  6. DILTIAZEM. [Concomitant]
     Active Substance: DILTIAZEM
  7. DUTASTERIDE. [Concomitant]
     Active Substance: DUTASTERIDE
  8. FISH OIL [Concomitant]
     Active Substance: FISH OIL
  9. TAMSULOSIN [Concomitant]
     Active Substance: TAMSULOSIN
  10. MPX [Concomitant]
  11. METOPROLOL 100MG [Suspect]
     Active Substance: METOPROLOL
     Indication: ATRIAL FIBRILLATION
     Dosage: ?          QUANTITY:1 DF DOSAGE FORM;?
     Route: 048
  12. OMEPRAZOLE. [Concomitant]
     Active Substance: OMEPRAZOLE
  13. CVS ASPERIN CHILD [Concomitant]
  14. B COMPLEX-C [Concomitant]
  15. ESTER-C [Concomitant]
     Active Substance: CALCIUM\VITAMINS
  16. CRANBERRY. [Concomitant]
     Active Substance: CRANBERRY
  17. VITAMIN D [Concomitant]
     Active Substance: CHOLECALCIFEROL
  18. VITAMIN E [Concomitant]
     Active Substance: .ALPHA.-TOCOPHEROL

REACTIONS (1)
  - Amnesia [None]

NARRATIVE: CASE EVENT DATE: 2012
